FAERS Safety Report 7740294-8 (Version None)
Quarter: 2011Q3

REPORT INFORMATION
  Report Type: 
  Country: None (occurrence: None)
  Receive Date: 20110909
  Receipt Date: 20110825
  Transmission Date: 20111222
  Serious: Yes (Other)
  Sender: FDA-Public Use
  Company Number: US-BAYER-2011-078832

PATIENT
  Age: 82 Year
  Sex: Male
  Weight: 68 kg

DRUGS (4)
  1. PROSTATE MEDICATION [Concomitant]
  2. CARDIOVASCULAR SYSTEM DRUGS [Concomitant]
  3. CHOLESTEROL- AND TRIGLYCERIDE REDUCERS [Concomitant]
     Dosage: 2 UNK, UNK
  4. PHILLIPS' MILK OF MAGNESIA LIQUID ORIGINAL [Suspect]
     Dosage: 2 DF, QD
     Route: 048
     Dates: start: 20110823, end: 20110825

REACTIONS (1)
  - URINARY RETENTION [None]
